FAERS Safety Report 7921114-5 (Version None)
Quarter: 2011Q4

REPORT INFORMATION
  Report Type: 
  Country: None (occurrence: None)
  Receive Date: 20111117
  Receipt Date: 20111111
  Transmission Date: 20120403
  Serious: Yes (Death, Hospitalization, Other)
  Sender: FDA-Public Use
  Company Number: JP-CEPHALON-2011005043

PATIENT
  Sex: Male

DRUGS (8)
  1. SULFAMETHOXAZOLE AND TRIMETHOPRIM [Concomitant]
     Dates: start: 20090901, end: 20110813
  2. GRANISETRON [Concomitant]
  3. CARBOCISTEIN [Concomitant]
     Dates: start: 20090901, end: 20110813
  4. DEXTROMETHORPHAN HYDROBROMIDE [Concomitant]
     Dates: start: 20090901, end: 20110813
  5. BENDAMUSTINE HCL [Suspect]
     Indication: MANTLE CELL LYMPHOMA
     Route: 042
     Dates: start: 20110328, end: 20110803
  6. ALLOPURINOL [Concomitant]
     Dates: start: 20090401, end: 20110813
  7. PREDNISOLONA [Concomitant]
     Dates: start: 20110805, end: 20110808
  8. RITUXIMAB [Concomitant]
     Dates: start: 20110328

REACTIONS (3)
  - NEUTROPHIL COUNT DECREASED [None]
  - SEPSIS [None]
  - PNEUMONIA [None]
